FAERS Safety Report 24738373 (Version 2)
Quarter: 2025Q1

REPORT INFORMATION
  Report Type: Spontaneous
  Country: IN (occurrence: IN)
  Receive Date: 20241216
  Receipt Date: 20250120
  Transmission Date: 20250409
  Serious: Yes (Death, Other)
  Sender: PFIZER
  Company Number: IN-PFIZER INC-202400322868

PATIENT
  Age: 61 Year
  Sex: Male

DRUGS (1)
  1. CRIZOTINIB [Suspect]
     Active Substance: CRIZOTINIB
     Route: 048

REACTIONS (10)
  - Death [Fatal]
  - Scleritis [Unknown]
  - Dyspnoea exertional [Unknown]
  - Retinal detachment [Unknown]
  - Vitreous haemorrhage [Unknown]
  - Neoplasm progression [Unknown]
  - Rash [Unknown]
  - Conjunctivitis [Unknown]
  - Abdominal distension [Unknown]
  - Hypophagia [Unknown]

NARRATIVE: CASE EVENT DATE: 20241223
